FAERS Safety Report 9196356 (Version 1)
Quarter: 2013Q1

REPORT INFORMATION
  Report Type: Spontaneous
  Country: BR (occurrence: BR)
  Receive Date: 20130328
  Receipt Date: 20130328
  Transmission Date: 20140127
  Serious: Yes (Other)
  Sender: FDA-Public Use
  Company Number: BR-PFIZER INC-2013084435

PATIENT
  Sex: Male

DRUGS (5)
  1. LYRICA [Suspect]
     Indication: BACK PAIN
     Dosage: 1 DF, 3X/DAY
     Dates: start: 2012
  2. LYRICA [Suspect]
     Dosage: 1 DF, 2X/DAY
     Route: 048
     Dates: start: 201303
  3. GABAPENTIN [Suspect]
     Indication: BACK PAIN
     Dosage: 300 UNK, UNK
  4. RIVOTRIL [Concomitant]
     Indication: SEDATIVE THERAPY
     Dosage: 2 MG, 1X/DAY, EVERY NIGHT)
  5. VENLAXIN [Concomitant]
     Indication: DEPRESSION
     Dosage: UNK MG, UNK
     Dates: start: 201204

REACTIONS (4)
  - Sciatic nerve injury [Unknown]
  - Headache [Recovered/Resolved]
  - Constipation [Not Recovered/Not Resolved]
  - Drug ineffective [Unknown]
